FAERS Safety Report 6563105-5 (Version None)
Quarter: 2010Q1

REPORT INFORMATION
  Report Type: 
  Country: None (occurrence: None)
  Receive Date: 20100130
  Receipt Date: 20091202
  Transmission Date: 20100710
  Serious: No
  Sender: FDA-Public Use
  Company Number: US-ABBOTT-09P-163-0612896-00

PATIENT
  Sex: Female
  Weight: 72.64 kg

DRUGS (3)
  1. HUMIRA [Suspect]
     Indication: PSORIASIS
     Route: 058
     Dates: start: 20090601
  2. HUMIRA [Suspect]
     Route: 058
     Dates: start: 20091127
  3. METFORMIN [Concomitant]
     Indication: POLYCYSTIC OVARIES

REACTIONS (3)
  - HERPES ZOSTER [None]
  - PAIN [None]
  - PARAESTHESIA [None]
